FAERS Safety Report 8229438-1 (Version None)
Quarter: 2012Q1

REPORT INFORMATION
  Report Type: 
  Country: None (occurrence: None)
  Receive Date: 20120322
  Receipt Date: 20120321
  Transmission Date: 20120608
  Serious: Yes (Death, Other)
  Sender: FDA-Public Use
  Company Number: HR-ABBOTT-12P-216-0912848-00

PATIENT
  Sex: Female
  Weight: 60 kg

DRUGS (11)
  1. ZEMPLAR [Suspect]
     Dosage: WEEK 2 = 4AMP (2X2AMP) WEEKLY
     Route: 042
     Dates: end: 20120203
  2. MIRCARA [Concomitant]
     Indication: PRODUCT USED FOR UNKNOWN INDICATION
     Route: 042
  3. ZEMPLAR [Suspect]
     Indication: HYPERPARATHYROIDISM SECONDARY
     Dosage: WEEK 1 = 3AMP WEEKLY (1AMP=5UG/ML)
     Route: 042
     Dates: start: 20100301
  4. VENOFER [Concomitant]
     Indication: PRODUCT USED FOR UNKNOWN INDICATION
     Dosage: 1 AMP = 100MG/5ML (12 AMP PER 1 WEEK)
     Route: 042
  5. SOBRIATERIT PULVAR [Concomitant]
     Indication: PRODUCT USED FOR UNKNOWN INDICATION
  6. BYOL [Concomitant]
     Indication: PRODUCT USED FOR UNKNOWN INDICATION
     Route: 048
  7. ANDOL [Concomitant]
     Indication: PRODUCT USED FOR UNKNOWN INDICATION
  8. TRAMADOL HCL [Concomitant]
     Indication: PRODUCT USED FOR UNKNOWN INDICATION
     Dosage: 3.75MG/325MG ONCE PER DAY
  9. BUPRENORPHINE [Concomitant]
     Indication: PRODUCT USED FOR UNKNOWN INDICATION
     Dosage: 35UG/H PATCH; 1/2 PATCH PER 4 DAY
     Route: 062
  10. EDEMID FORTE [Concomitant]
     Indication: HYPERTENSION
     Route: 048
  11. SIMVASTATIN [Concomitant]
     Indication: PRODUCT USED FOR UNKNOWN INDICATION

REACTIONS (2)
  - HYDROTHORAX [None]
  - MALNUTRITION [None]
